FAERS Safety Report 9296275 (Version 1)
Quarter: 2013Q2

REPORT INFORMATION
  Report Type: Spontaneous
  Country: US (occurrence: US)
  Receive Date: 20130517
  Receipt Date: 20130517
  Transmission Date: 20140414
  Serious: Yes (Hospitalization)
  Sender: FDA-Public Use
  Company Number: US-ASTRAZENECA-2013SE32688

PATIENT
  Age: 69 Year
  Sex: Female
  Weight: 135 kg

DRUGS (20)
  1. OMEPRAZOLE [Suspect]
     Indication: GASTROOESOPHAGEAL REFLUX DISEASE
     Route: 048
  2. DABIGATRAN [Interacting]
     Indication: ATRIAL FIBRILLATION
     Route: 048
     Dates: start: 2007
  3. DIGOXIN [Interacting]
  4. DILTIAZEM [Interacting]
  5. ASPIRIN [Concomitant]
  6. LISINOPRIL [Concomitant]
  7. METOPROLOL TARTARATE [Concomitant]
  8. POTASSIUM CHLORIDE [Concomitant]
  9. METFORMIN [Concomitant]
  10. FUROSEMIDE [Concomitant]
  11. GLIMEPIRIDE [Concomitant]
  12. INSULIN [Concomitant]
  13. LEVOTHYROXINE [Concomitant]
  14. GEMFIBROZIL [Concomitant]
  15. FISH OIL [Concomitant]
  16. ALBUTEROL [Concomitant]
  17. DULOXETINE [Concomitant]
  18. CELECOXIB [Concomitant]
  19. VITAMIN D3 [Concomitant]
  20. LORAZEPAM [Concomitant]

REACTIONS (2)
  - Drug interaction [Recovered/Resolved]
  - Pulmonary embolism [Recovered/Resolved]
